FAERS Safety Report 10195815 (Version 2)
Quarter: 2014Q2

REPORT INFORMATION
  Report Type: Spontaneous
  Country: DE (occurrence: DE)
  Receive Date: 20140527
  Receipt Date: 20140527
  Transmission Date: 20141212
  Serious: Yes (Other)
  Sender: FDA-Public Use
  Company Number: DE-AMGEN INC.-DEUSP2014013709

PATIENT
  Age: 67 Year
  Sex: Female

DRUGS (9)
  1. ENBREL [Suspect]
     Indication: RHEUMATOID ARTHRITIS
     Dosage: 50 MG, WEEKLY
     Route: 065
     Dates: start: 20140116, end: 20140505
  2. CORTISON [Suspect]
     Indication: PRODUCT USED FOR UNKNOWN INDICATION
     Dosage: UNK
     Route: 065
     Dates: start: 20140311
  3. METHOTREXATE [Concomitant]
     Dosage: UNK
  4. DICLO KD [Concomitant]
     Indication: PAIN
     Dosage: UNK, AS NEEDED
  5. PREDNISOLON                        /00016201/ [Concomitant]
     Indication: PAIN
     Dosage: 20 MG, DAILY
  6. PREDNISOLON                        /00016201/ [Concomitant]
  7. ARAVA [Concomitant]
     Dosage: UNK
  8. SULFASALAZIN [Concomitant]
     Dosage: UNK
  9. FOLIC ACID [Concomitant]
     Dosage: UNK

REACTIONS (4)
  - Rheumatoid arthritis [Not Recovered/Not Resolved]
  - Blood test abnormal [Not Recovered/Not Resolved]
  - Drug effect incomplete [Not Recovered/Not Resolved]
  - Pain [Unknown]
